FAERS Safety Report 15418853 (Version 4)
Quarter: 2019Q3

REPORT INFORMATION
  Report Type: Spontaneous
  Country: US (occurrence: US)
  Receive Date: 20180924
  Receipt Date: 20190822
  Transmission Date: 20191004
  Serious: No
  Sender: FDA-Public Use
  Company Number: US-SA-2018SA263969

PATIENT
  Age: 37 Year
  Sex: Male
  Weight: 67.12 kg

DRUGS (15)
  1. DIPHENHYDRAMINE. [Concomitant]
     Active Substance: DIPHENHYDRAMINE
     Indication: ANAPHYLACTIC REACTION
     Dosage: 25 MG,PRN
     Route: 042
     Dates: start: 20190724
  2. MULTIVITAMINS [VITAMINS NOS] [Concomitant]
     Active Substance: VITAMINS
     Dosage: 1 DF, Q3W
     Route: 048
     Dates: start: 20180921
  3. ACETAMINOPHEN. [Concomitant]
     Active Substance: ACETAMINOPHEN
     Indication: PREMEDICATION
     Dosage: 650 MG
     Route: 048
     Dates: start: 20180725
  4. SODIUM CHLORIDE. [Concomitant]
     Active Substance: SODIUM CHLORIDE
     Dosage: 0.9 %, UNK
     Route: 042
     Dates: start: 20190724
  5. STERILE WATER [Concomitant]
     Active Substance: WATER
     Dosage: UNK UNK, UNK
     Route: 065
     Dates: start: 20190724
  6. MECLIZINE [Concomitant]
     Active Substance: MECLIZINE HYDROCHLORIDE
     Dosage: 1 DF, PRN
     Route: 048
     Dates: start: 20181101
  7. DIPHENHYDRAMINE. [Concomitant]
     Active Substance: DIPHENHYDRAMINE
     Indication: PREMEDICATION
     Dosage: 50 MG/ML, PRN
     Route: 042
     Dates: start: 20180725
  8. APRISO [Concomitant]
     Active Substance: MESALAMINE
     Dosage: 2 DF, PRN
     Route: 048
     Dates: start: 20180921
  9. STERILE WATER [Concomitant]
     Active Substance: WATER
     Dosage: 1 DF AS DIRECTED
     Route: 042
     Dates: start: 20180725
  10. FABRAZYME [Suspect]
     Active Substance: AGALSIDASE BETA
     Indication: FABRY^S DISEASE
     Dosage: 0.99 MG/KG, QOW,65MG
     Route: 041
     Dates: start: 20160819
  11. EPINEPHRINE. [Concomitant]
     Active Substance: EPINEPHRINE
     Indication: ANAPHYLACTIC REACTION
     Dosage: 0.3 MG, PRN
     Route: 030
     Dates: start: 20180725
  12. IRON [Concomitant]
     Active Substance: IRON
     Dosage: 1 DF, QD
     Route: 048
     Dates: start: 20180819
  13. NORMAL SALINE [Concomitant]
     Active Substance: SODIUM CHLORIDE
     Dosage: 0.9 %
     Route: 042
     Dates: start: 20190724
  14. SODIUM CHLORIDE. [Concomitant]
     Active Substance: SODIUM CHLORIDE
     Indication: FLUSHING
     Dosage: 0.9 % AS DIRECTED
     Route: 042
     Dates: start: 20180725
  15. SOLU-CORTEF [Concomitant]
     Active Substance: HYDROCORTISONE SODIUM SUCCINATE
     Dosage: 50 MG AS DIRECTED
     Route: 042
     Dates: start: 20180725

REACTIONS (4)
  - Rash [Not Recovered/Not Resolved]
  - Ligament sprain [Unknown]
  - Vomiting [Unknown]
  - Nausea [Unknown]

NARRATIVE: CASE EVENT DATE: 20180916
